FAERS Safety Report 14282299 (Version 5)
Quarter: 2022Q3

REPORT INFORMATION
  Report Type: Spontaneous
  Country: US (occurrence: US)
  Receive Date: 20171213
  Receipt Date: 20220920
  Transmission Date: 20221027
  Serious: Yes (Other)
  Sender: FDA-Public Use
  Company Number: US-PFIZER INC-2016577492

PATIENT
  Age: 56 Year
  Sex: Male
  Weight: 96.62 kg

DRUGS (1)
  1. RAPAMUNE [Suspect]
     Active Substance: SIROLIMUS
     Indication: Liver transplant
     Dosage: 1 MG, 1X/DAY
     Route: 048
     Dates: start: 201302

REACTIONS (7)
  - Neoplasm malignant [Unknown]
  - Rib fracture [Not Recovered/Not Resolved]
  - Off label use [Unknown]
  - Fall [Recovering/Resolving]
  - Head injury [Recovering/Resolving]
  - Musculoskeletal chest pain [Not Recovered/Not Resolved]
  - Bradykinesia [Not Recovered/Not Resolved]

NARRATIVE: CASE EVENT DATE: 20130201
